FAERS Safety Report 5078141-8 (Version None)
Quarter: 2006Q3

REPORT INFORMATION
  Report Type: 
  Country: None (occurrence: None)
  Receive Date: 20060811
  Receipt Date: 20060731
  Transmission Date: 20061208
  Serious: Yes (Other)
  Sender: FDA-Public Use
  Company Number: PHEH2006US09741

PATIENT
  Age: 54 Year
  Sex: Female

DRUGS (2)
  1. LOTREL [Suspect]
     Indication: HYPERTENSION
     Dosage: 5/20 MG, QD
     Route: 048
     Dates: end: 20060501
  2. LOTREL [Suspect]
     Dosage: 10/20 MG, QD
     Route: 048
     Dates: start: 20060501

REACTIONS (3)
  - BLOOD PRESSURE INADEQUATELY CONTROLLED [None]
  - RETINAL ARTERY OCCLUSION [None]
  - TELANGIECTASIA [None]
